FAERS Safety Report 15095069 (Version 1)
Quarter: 2018Q3

REPORT INFORMATION
  Report Type: Spontaneous
  Country: IT (occurrence: IT)
  Receive Date: 20180702
  Receipt Date: 20180702
  Transmission Date: 20181010
  Serious: Yes (Other)
  Sender: FDA-Public Use
  Company Number: IT-TEVA-2018-IT-916780

PATIENT
  Age: 71 Year
  Sex: Female

DRUGS (18)
  1. REPAGLINIDE. [Concomitant]
     Active Substance: REPAGLINIDE
     Route: 048
  2. FLUIMUCIL [Concomitant]
     Active Substance: ACETYLCYSTEINE
     Route: 048
  3. BACTRIM [Concomitant]
     Active Substance: SULFAMETHOXAZOLE\TRIMETHOPRIM
     Route: 048
  4. DELTACORTENE [Concomitant]
     Active Substance: PREDNISONE
     Route: 048
  5. FULCROSUPRA [Concomitant]
     Active Substance: FENOFIBRATE
     Route: 048
  6. DOBETIN [Concomitant]
     Route: 048
  7. DIBASE [Concomitant]
     Active Substance: CHOLECALCIFEROL
     Route: 048
  8. ALPRAZOLAM. [Suspect]
     Active Substance: ALPRAZOLAM
     Route: 048
  9. VENLAFAXINE [Concomitant]
     Active Substance: VENLAFAXINE HYDROCHLORIDE
     Route: 048
  10. AMLODIPINE [Concomitant]
     Active Substance: AMLODIPINE BESYLATE
     Route: 048
  11. CLOPIDOGREL [Concomitant]
     Active Substance: CLOPIDOGREL BISULFATE
     Route: 048
  12. INEGY [Concomitant]
     Active Substance: EZETIMIBE\SIMVASTATIN
     Route: 048
  13. CARDIOASPIRIN [Concomitant]
     Active Substance: ASPIRIN
     Route: 048
  14. ALENDRONIC ACID [Concomitant]
     Active Substance: ALENDRONIC ACID
     Route: 048
  15. OMEPRAZOLE. [Concomitant]
     Active Substance: OMEPRAZOLE
     Route: 048
  16. BISOPROLOL FUMARATE. [Concomitant]
     Active Substance: BISOPROLOL FUMARATE
     Route: 048
  17. MICARDIS [Concomitant]
     Active Substance: TELMISARTAN
     Route: 048
  18. FOLINA [Concomitant]
     Active Substance: FOLIC ACID
     Route: 048

REACTIONS (3)
  - Hypokinesia [Unknown]
  - Sopor [Unknown]
  - Medication error [Unknown]

NARRATIVE: CASE EVENT DATE: 20170922
